FAERS Safety Report 5412058-1 (Version None)
Quarter: 2007Q3

REPORT INFORMATION
  Report Type: 
  Country: None (occurrence: None)
  Receive Date: 20070809
  Receipt Date: 20070729
  Transmission Date: 20080115
  Serious: Yes (Other)
  Sender: FDA-Public Use
  Company Number: 07H-163-0312956-00

PATIENT
  Age: 1 Year
  Sex: 0

DRUGS (1)
  1. MIDAZOLAM HYDROCHLORIDE [Suspect]
     Indication: SEDATIVE THERAPY

REACTIONS (2)
  - INTERCOSTAL RETRACTION [None]
  - OXYGEN SATURATION DECREASED [None]
